FAERS Safety Report 10289416 (Version 1)
Quarter: 2014Q3

REPORT INFORMATION
  Report Type: Spontaneous
  Country: NL (occurrence: NL)
  Receive Date: 20140710
  Receipt Date: 20140710
  Transmission Date: 20150326
  Serious: Yes (Other)
  Sender: FDA-Public Use
  Company Number: PHHY2014NL082422

PATIENT
  Sex: Female

DRUGS (1)
  1. AMITRIPTYLINE SANDOZ [Suspect]
     Active Substance: AMITRIPTYLINE
     Indication: SLEEP DISORDER

REACTIONS (3)
  - Pleural effusion [Unknown]
  - Dyspnoea [Unknown]
  - Hyperventilation [Unknown]
